FAERS Safety Report 25070553 (Version 2)
Quarter: 2025Q1

REPORT INFORMATION
  Report Type: Spontaneous
  Country: US (occurrence: US)
  Receive Date: 20250312
  Receipt Date: 20250330
  Transmission Date: 20250409
  Serious: No
  Sender: SANOFI AVENTIS
  Company Number: US-SA-2025SA072468

PATIENT
  Age: 61 Year
  Sex: Female
  Weight: 70.95 kg

DRUGS (18)
  1. DUPIXENT [Suspect]
     Active Substance: DUPILUMAB
     Indication: Asthma
     Dosage: 300 MG, QOW
     Route: 058
     Dates: start: 202410
  2. DUPIXENT [Suspect]
     Active Substance: DUPILUMAB
     Indication: Chronic obstructive pulmonary disease
  3. PREDNISONE [Concomitant]
     Active Substance: PREDNISONE
  4. PANTOPRAZOLE SODIUM [Concomitant]
     Active Substance: PANTOPRAZOLE SODIUM
  5. ALPRAZOLAM [Concomitant]
     Active Substance: ALPRAZOLAM
  6. BREZTRI [Concomitant]
     Active Substance: BUDESONIDE\FORMOTEROL\GLYCOPYRROLATE
  7. DOXYCYCLINE HYCLATE [Concomitant]
     Active Substance: DOXYCYCLINE HYCLATE
  8. VALSARTAN [Concomitant]
     Active Substance: VALSARTAN
  9. TRIAMTERENE AND HYDROCHLOROTHIAZIDE [Concomitant]
     Active Substance: HYDROCHLOROTHIAZIDE\TRIAMTERENE
  10. AMLODIPINE BESYLATE [Concomitant]
     Active Substance: AMLODIPINE BESYLATE
  11. MONTELUKAST SODIUM [Concomitant]
     Active Substance: MONTELUKAST SODIUM
  12. RISPERIDONE [Concomitant]
     Active Substance: RISPERIDONE
  13. BUPROPION [Concomitant]
     Active Substance: BUPROPION
  14. OXYGEN [Concomitant]
     Active Substance: OXYGEN
  15. WELLBUTRIN XL [Concomitant]
     Active Substance: BUPROPION HYDROCHLORIDE
     Dosage: UNK, QD
  16. SINGULAIR [Concomitant]
     Active Substance: MONTELUKAST SODIUM
  17. RISPERDAL [Concomitant]
     Active Substance: RISPERIDONE
  18. XANAX [Concomitant]
     Active Substance: ALPRAZOLAM

REACTIONS (2)
  - Asthma [Unknown]
  - Wheezing [Unknown]

NARRATIVE: CASE EVENT DATE: 20250201
